FAERS Safety Report 6030901-2 (Version None)
Quarter: 2009Q1

REPORT INFORMATION
  Report Type: 
  Country: None (occurrence: None)
  Receive Date: 20090106
  Receipt Date: 20081222
  Transmission Date: 20090719
  Serious: No
  Sender: FDA-Public Use
  Company Number: KV200801376

PATIENT
  Age: 48 Year
  Sex: Female

DRUGS (8)
  1. PROPAFENONE HYDROCHLORIDE [Suspect]
     Indication: ATRIAL FIBRILLATION
     Dosage: 150 MG, TID, ORAL
     Route: 048
     Dates: start: 20060101, end: 20081210
  2. ZADITOR (KETOTIFEN) [Concomitant]
  3. GLEEVEC [Concomitant]
  4. PANTOPRAZOLE SODIUM [Concomitant]
  5. LORAZEPAM [Concomitant]
  6. CALTRATE+D (CALCIUM CARBONATE, COLECALCIFEROL) [Concomitant]
  7. BENADRYL [Concomitant]
  8. MAGNESIUM (MAGNESIUM) [Concomitant]

REACTIONS (3)
  - ATRIAL FIBRILLATION [None]
  - LOSS OF CONSCIOUSNESS [None]
  - PRODUCT QUALITY ISSUE [None]
